FAERS Safety Report 7919884-5 (Version None)
Quarter: 2011Q4

REPORT INFORMATION
  Report Type: 
  Country: None (occurrence: None)
  Receive Date: 20111117
  Receipt Date: 20111104
  Transmission Date: 20120403
  Serious: Yes (Other)
  Sender: FDA-Public Use
  Company Number: US-BAYER-201036081NA

PATIENT
  Age: 22 Year
  Sex: Female
  Weight: 70.748 kg

DRUGS (7)
  1. CELEXA [Concomitant]
     Indication: DEPRESSION
     Dosage: 20 MG, QD
     Route: 048
  2. PERCOCET [Concomitant]
     Indication: PAIN
     Dosage: UNK UNK, PRN
     Route: 048
  3. DROSPIRENONE AND ETHINYL ESTRADIOL [Suspect]
     Indication: ACNE
  4. PROMETHAZINE [Concomitant]
     Indication: NAUSEA
     Dosage: 25 MG, UNK
     Route: 048
  5. DROSPIRENONE AND ETHINYL ESTRADIOL [Suspect]
     Indication: CONTRACEPTION
     Dosage: UNK
     Route: 048
     Dates: start: 20090401, end: 20100101
  6. RANITIDINE [Concomitant]
     Indication: GASTROOESOPHAGEAL REFLUX DISEASE
     Dosage: 150 MG, BID
     Route: 048
  7. DROSPIRENONE AND ETHINYL ESTRADIOL [Suspect]
     Indication: PREMENSTRUAL SYNDROME

REACTIONS (11)
  - CONSTIPATION [None]
  - ANXIETY [None]
  - FLATULENCE [None]
  - ABDOMINAL DISTENSION [None]
  - CHOLECYSTITIS CHRONIC [None]
  - DYSPEPSIA [None]
  - PAIN [None]
  - CHOLECYSTITIS INFECTIVE [None]
  - SCAR [None]
  - DIARRHOEA [None]
  - DEPRESSION [None]
